FAERS Safety Report 7319229-8 (Version None)
Quarter: 2011Q1

REPORT INFORMATION
  Report Type: 
  Country: None (occurrence: None)
  Receive Date: 20110228
  Receipt Date: 20110223
  Transmission Date: 20110831
  Serious: Yes (Hospitalization)
  Sender: FDA-Public Use
  Company Number: GB-PFIZER INC-2011040182

PATIENT
  Age: 67 Year
  Sex: Male
  Weight: 74.5 kg

DRUGS (6)
  1. SIMVASTATIN [Concomitant]
  2. PIROXICAM [Suspect]
     Dosage: 3 X DAILY
     Route: 061
     Dates: start: 20101109, end: 20101118
  3. ATENOLOL [Concomitant]
  4. CALCIUM AND ERGOCALCIFEROL /UNK/ [Concomitant]
  5. ISOSORBIDE MONONITRATE [Concomitant]
  6. RANITIDINE [Concomitant]

REACTIONS (2)
  - COLITIS ULCERATIVE [None]
  - DIARRHOEA [None]
